FAERS Safety Report 18024451 (Version 2)
Quarter: 2020Q3

REPORT INFORMATION
  Report Type: Spontaneous
  Country: JP (occurrence: JP)
  Receive Date: 20200714
  Receipt Date: 20200731
  Transmission Date: 20201103
  Serious: Yes (Hospitalization, Other)
  Sender: FDA-Public Use
  Company Number: JP-GILEAD-2020-0480980

PATIENT
  Age: 73 Year
  Sex: Male

DRUGS (14)
  1. LIXIANA [Concomitant]
     Active Substance: EDOXABAN TOSYLATE
  2. LOXOPROFEN [Concomitant]
     Active Substance: LOXOPROFEN
  3. MAGMITT [Concomitant]
     Active Substance: MAGNESIUM OXIDE
  4. TAKECAB [Concomitant]
     Active Substance: VONOPRAZAN FUMARATE
  5. FEBURIC [Concomitant]
     Active Substance: FEBUXOSTAT
  6. VEMLIDY [Suspect]
     Active Substance: TENOFOVIR ALAFENAMIDE FUMARATE
     Indication: HEPATITIS B
     Dosage: 25 MG
     Route: 065
     Dates: end: 20200705
  7. REBAMIPIDE [Concomitant]
     Active Substance: REBAMIPIDE
  8. SM [SODIUM CHLORIDE] [Concomitant]
  9. TELTHIA [Concomitant]
  10. BISONO [Concomitant]
     Active Substance: BISOPROLOL
  11. PROPRANOLOL HYDROCHLORIDE. [Concomitant]
     Active Substance: PROPRANOLOL HYDROCHLORIDE
  12. ROSUVASTATIN. [Concomitant]
     Active Substance: ROSUVASTATIN
  13. ZETIA [Concomitant]
     Active Substance: EZETIMIBE
  14. AMLODIPINE [Concomitant]
     Active Substance: AMLODIPINE BESYLATE

REACTIONS (1)
  - Cerebral infarction [Unknown]

NARRATIVE: CASE EVENT DATE: 20200705
